FAERS Safety Report 5930208-5 (Version None)
Quarter: 2008Q4

REPORT INFORMATION
  Report Type: 
  Country: None (occurrence: None)
  Receive Date: 20081024
  Receipt Date: 20081016
  Transmission Date: 20090506
  Serious: Yes (Death, Other)
  Sender: FDA-Public Use
  Company Number: US-PFIZER INC-2008087370

PATIENT

DRUGS (2)
  1. CELEBREX [Suspect]
  2. ACETYLSALICYLIC ACID SRT [Suspect]

REACTIONS (2)
  - DEATH [None]
  - HAEMORRHAGE [None]
